FAERS Safety Report 7202901-8 (Version None)
Quarter: 2010Q4

REPORT INFORMATION
  Report Type: 
  Country: None (occurrence: None)
  Receive Date: 20101229
  Receipt Date: 20101222
  Transmission Date: 20110411
  Serious: Yes (Other)
  Sender: FDA-Public Use
  Company Number: CH-PFIZER INC-CH-WYE-G06478010

PATIENT
  Age: 29 Year
  Sex: Female

DRUGS (4)
  1. ATARAX [Suspect]
     Indication: BIPOLAR DISORDER
     Dosage: TREATMENT STARTED AT THE 5TH WEEK OF AMENORRHEA, DURING THE FIRST TRIMESTER OF PREGNANCY
     Route: 065
     Dates: start: 20090101, end: 20090101
  2. EFFEXOR [Suspect]
     Indication: BIPOLAR DISORDER
     Dosage: 262.5 MG, 1X/DAY
     Route: 065
  3. EFFEXOR [Suspect]
     Indication: OFF LABEL USE
  4. EUTHYROX [Concomitant]
     Route: 065

REACTIONS (1)
  - BIPOLAR DISORDER [None]
